FAERS Safety Report 20785148 (Version 1)
Quarter: 2022Q2

REPORT INFORMATION
  Report Type: Spontaneous
  Country: US (occurrence: None)
  Receive Date: 20220504
  Receipt Date: 20220504
  Transmission Date: 20220721
  Serious: Yes (Hospitalization)
  Sender: FDA-Public Use
  Company Number: None

PATIENT
  Sex: Male
  Weight: 68.9 kg

DRUGS (9)
  1. FLUOROURACIL [Suspect]
     Active Substance: FLUOROURACIL
     Indication: Chemotherapy
     Dates: end: 20220417
  2. CISPLATIN [Suspect]
     Active Substance: CISPLATIN
     Dates: end: 20220413
  3. GABAPENTIN [Concomitant]
     Active Substance: GABAPENTIN
  4. LISINOPRIL AND HYDROCHLOROTHIAZIDE [Concomitant]
     Active Substance: HYDROCHLOROTHIAZIDE\LISINOPRIL
  5. METOPROLOL [Concomitant]
     Active Substance: METOPROLOL
  6. NYSTATIN [Concomitant]
     Active Substance: NYSTATIN
  7. ONDANSETRON [Concomitant]
     Active Substance: ONDANSETRON
  8. PROCHLORPERAZINE [Concomitant]
     Active Substance: PROCHLORPERAZINE
  9. TRAMADOL [Concomitant]
     Active Substance: TRAMADOL

REACTIONS (20)
  - Fatigue [None]
  - Asthenia [None]
  - Oral disorder [None]
  - Oropharyngeal pain [None]
  - Dysphagia [None]
  - Nausea [None]
  - Vomiting [None]
  - Tachycardia [None]
  - Decreased appetite [None]
  - Mucosal inflammation [None]
  - Hypomagnesaemia [None]
  - Hypokalaemia [None]
  - Platelet count decreased [None]
  - Hypophagia [None]
  - Therapy interrupted [None]
  - Blood creatinine increased [None]
  - White blood cell count increased [None]
  - Haemoglobin decreased [None]
  - Hypophosphataemia [None]
  - Oral pain [None]

NARRATIVE: CASE EVENT DATE: 20220420
